FAERS Safety Report 11654285 (Version 1)
Quarter: 2015Q4

REPORT INFORMATION
  Report Type: Spontaneous
  Country: FR (occurrence: FR)
  Receive Date: 20151023
  Receipt Date: 20151023
  Transmission Date: 20160304
  Serious: Yes (Hospitalization)
  Sender: FDA-Public Use
  Company Number: FR-ROCHE-1649181

PATIENT
  Age: 70 Year
  Sex: Female

DRUGS (15)
  1. VANCOMYCINE [Suspect]
     Active Substance: VANCOMYCIN
     Indication: PRODUCT USED FOR UNKNOWN INDICATION
     Route: 065
     Dates: start: 20150908
  2. CEFOTAXIME [Suspect]
     Active Substance: CEFOTAXIME SODIUM
     Indication: PRODUCT USED FOR UNKNOWN INDICATION
     Route: 065
     Dates: start: 20150908, end: 20150909
  3. BACTRIM [Suspect]
     Active Substance: SULFAMETHOXAZOLE\TRIMETHOPRIM
     Indication: PRODUCT USED FOR UNKNOWN INDICATION
     Route: 065
     Dates: start: 20150909, end: 20150914
  4. BISOCE [Concomitant]
     Active Substance: BISOPROLOL
  5. LEVOTHYROX [Concomitant]
     Active Substance: LEVOTHYROXINE
  6. LOPERAMIDE [Concomitant]
     Active Substance: LOPERAMIDE
  7. RAMIPRIL. [Concomitant]
     Active Substance: RAMIPRIL
  8. CODEINE [Concomitant]
     Active Substance: CODEINE
  9. AMIODARONE [Concomitant]
     Active Substance: AMIODARONE
  10. CEFTRIAXONE. [Suspect]
     Active Substance: CEFTRIAXONE
     Indication: PRODUCT USED FOR UNKNOWN INDICATION
     Route: 065
     Dates: start: 20150907, end: 20150908
  11. COUMADINE [Concomitant]
     Active Substance: WARFARIN SODIUM
  12. INEXIUM [Concomitant]
     Active Substance: ESOMEPRAZOLE
  13. TAUROLOCK [Concomitant]
     Dosage: CATHETER LOCK
     Route: 065
  14. PARACETAMOL [Concomitant]
     Active Substance: ACETAMINOPHEN
  15. PAROXETINE [Concomitant]
     Active Substance: PAROXETINE\PAROXETINE HYDROCHLORIDE

REACTIONS (4)
  - Renal failure [Unknown]
  - Anaemia [Unknown]
  - Cholestasis [Unknown]
  - Hyponatraemia [Unknown]
